FAERS Safety Report 6379929-3 (Version None)
Quarter: 2009Q3

REPORT INFORMATION
  Report Type: 
  Country: None (occurrence: None)
  Receive Date: 20090928
  Receipt Date: 20090916
  Transmission Date: 20100115
  Serious: Yes (Other)
  Sender: FDA-Public Use
  Company Number: GR-GENENTECH-290744

PATIENT

DRUGS (2)
  1. AVASTIN [Suspect]
     Indication: RENAL CANCER
     Route: 042
  2. INTERFERON [Concomitant]
     Indication: DRUG USE FOR UNKNOWN INDICATION

REACTIONS (1)
  - EXTRAVASATION [None]
